FAERS Safety Report 7459658-5 (Version None)
Quarter: 2011Q2

REPORT INFORMATION
  Report Type: 
  Country: None (occurrence: None)
  Receive Date: 20110505
  Receipt Date: 20110429
  Transmission Date: 20111010
  Serious: Yes (Other)
  Sender: FDA-Public Use
  Company Number: PHHY2011CA17020

PATIENT
  Sex: Male

DRUGS (1)
  1. ZOLEDRONIC ACID [Suspect]
     Indication: OSTEOPOROSIS
     Dosage: 5 MG, UNK
     Route: 042
     Dates: start: 20110424

REACTIONS (12)
  - JOINT SWELLING [None]
  - INFLUENZA LIKE ILLNESS [None]
  - CHILLS [None]
  - MYALGIA [None]
  - ARTHRALGIA [None]
  - RASH GENERALISED [None]
  - ERYTHEMA [None]
  - POLYARTHRITIS [None]
  - PYREXIA [None]
  - RASH [None]
  - PAIN IN EXTREMITY [None]
  - ASTHENIA [None]
